FAERS Safety Report 18618647 (Version 1)
Quarter: 2020Q4

REPORT INFORMATION
  Report Type: Spontaneous
  Country: US (occurrence: US)
  Receive Date: 20201215
  Receipt Date: 20201215
  Transmission Date: 20210114
  Serious: No
  Sender: FDA-Public Use
  Company Number: US-ELI_LILLY_AND_COMPANY-US202011009507

PATIENT
  Age: 51 Year
  Sex: Male

DRUGS (1)
  1. EMGALITY [Suspect]
     Active Substance: GALCANEZUMAB-GNLM
     Indication: HEAD DISCOMFORT
     Dosage: 120 MG, UNKNOWN
     Route: 058
     Dates: start: 202008

REACTIONS (5)
  - Nausea [Unknown]
  - Off label use [Unknown]
  - Headache [Unknown]
  - Taste disorder [Not Recovered/Not Resolved]
  - Feeling abnormal [Unknown]

NARRATIVE: CASE EVENT DATE: 20201118
